FAERS Safety Report 8042545-1 (Version None)
Quarter: 2012Q1

REPORT INFORMATION
  Report Type: 
  Country: None (occurrence: None)
  Receive Date: 20120112
  Receipt Date: 20120103
  Transmission Date: 20120608
  Serious: Yes (Hospitalization, Other)
  Sender: FDA-Public Use
  Company Number: US-PFIZER INC-2012001782

PATIENT
  Sex: Male
  Weight: 80.72 kg

DRUGS (4)
  1. LIPITOR [Suspect]
     Indication: BLOOD CHOLESTEROL INCREASED
     Dosage: 80 MG, 1X/DAY
     Route: 048
     Dates: start: 20110805
  2. HYTRIN [Concomitant]
     Indication: HYPERTENSION
     Dosage: 5 MG, DAILY
     Route: 048
  3. OXYBUTYNIN [Concomitant]
     Indication: MICTURITION DISORDER
     Dosage: 10 MG, DAILY
  4. ZOCOR [Suspect]
     Indication: BLOOD CHOLESTEROL INCREASED
     Dosage: 40 MG, 1X/DAY
     Dates: start: 19920101, end: 20110804

REACTIONS (2)
  - UPPER RESPIRATORY TRACT INFECTION [None]
  - ANGIOPLASTY [None]
